FAERS Safety Report 7486415-6 (Version None)
Quarter: 2011Q2

REPORT INFORMATION
  Report Type: 
  Country: None (occurrence: None)
  Receive Date: 20110517
  Receipt Date: 20110513
  Transmission Date: 20111010
  Serious: Yes (Hospitalization, Other)
  Sender: FDA-Public Use
  Company Number: BR-ABBOTT-11P-020-0725773-00

PATIENT
  Sex: Female
  Weight: 57 kg

DRUGS (2)
  1. DIAZEPAM [Concomitant]
     Indication: ANTIDEPRESSANT THERAPY
     Dates: start: 20010101, end: 20101201
  2. HUMIRA [Suspect]
     Indication: RHEUMATOID ARTHRITIS
     Route: 058
     Dates: end: 20101201

REACTIONS (4)
  - PULMONARY OEDEMA [None]
  - TUBERCULOSIS [None]
  - BEDRIDDEN [None]
  - ASTHENIA [None]
